FAERS Safety Report 4320315-5 (Version None)
Quarter: 2004Q1

REPORT INFORMATION
  Report Type: 
  Country: None (occurrence: None)
  Receive Date: 20040317
  Receipt Date: 20040315
  Transmission Date: 20041129
  Serious: Yes (Death, Hospitalization)
  Sender: FDA-Public Use
  Company Number: 02-0104 FOLLOW-UP 2

PATIENT
  Age: 61 Year
  Sex: Male
  Weight: 64 kg

DRUGS (2)
  1. MEFENAMIC ACID [Suspect]
     Indication: PYELONEPHRITIS
     Dosage: PO
     Route: 048
     Dates: start: 20020725, end: 20020725
  2. LEVOFLOXACIN [Suspect]
     Indication: PYELONEPHRITIS
     Dosage: PO
     Route: 048
     Dates: start: 20020725, end: 20020725

REACTIONS (12)
  - ASCITES [None]
  - BLOOD PRESSURE DECREASED [None]
  - DYSPNOEA [None]
  - ESCHERICHIA SEPSIS [None]
  - ESCHERICHIA URINARY TRACT INFECTION [None]
  - HAEMODIALYSIS [None]
  - HEPATIC NECROSIS [None]
  - HEPATITIS FULMINANT [None]
  - LOSS OF CONSCIOUSNESS [None]
  - MULTI-ORGAN FAILURE [None]
  - PLEURAL EFFUSION [None]
  - URINE OUTPUT DECREASED [None]
